FAERS Safety Report 11337195 (Version 1)
Quarter: 2015Q3

REPORT INFORMATION
  Report Type: Spontaneous
  Country: NG (occurrence: NG)
  Receive Date: 20150804
  Receipt Date: 20150804
  Transmission Date: 20151125
  Serious: Yes (Other)
  Sender: FDA-Public Use
  Company Number: NG-FRESENIUS KABI-FK201503682

PATIENT
  Age: 28 Year
  Sex: Female

DRUGS (3)
  1. BUPIVACAINE (MANUFACTURER UNKNOWN) (BUPIVACAINE) (BUPIVACAINE) [Suspect]
     Active Substance: BUPIVACAINE
     Indication: LOCAL ANAESTHESIA
     Route: 050
  2. LIDOCAINE / EPINEPHRINE 2% (MANUFACTURER UNKNOWN) [Suspect]
     Active Substance: EPINEPHRINE\LIDOCAINE
     Indication: LOCAL ANAESTHESIA
     Route: 050
  3. LIDOCAINE WITH ADRENALINE [Suspect]
     Active Substance: EPINEPHRINE\LIDOCAINE
     Indication: PRODUCT USED FOR UNKNOWN INDICATION
     Route: 065

REACTIONS (2)
  - Incorrect route of drug administration [Recovered/Resolved]
  - Generalised tonic-clonic seizure [Recovered/Resolved]
